FAERS Safety Report 5813706-4 (Version None)
Quarter: 2008Q3

REPORT INFORMATION
  Report Type: 
  Country: None (occurrence: None)
  Receive Date: 20080717
  Receipt Date: 20080709
  Transmission Date: 20090109
  Serious: Yes (Other)
  Sender: FDA-Public Use
  Company Number: CN-ROCHE-575764

PATIENT
  Age: 39 Year
  Sex: Male

DRUGS (2)
  1. CEFTRIAXONE SODIUM [Suspect]
     Indication: TONSILLITIS
     Dosage: ROUTE: INTRAVENOUS DRIP, GIVEN WITH 500 ML GLUCOSE 5%.
     Route: 042
  2. RIBAVIRIN [Interacting]
     Indication: DRUG USE FOR UNKNOWN INDICATION
     Route: 065

REACTIONS (3)
  - DRUG INTERACTION [None]
  - DYSPNOEA [None]
  - VOMITING [None]
